FAERS Safety Report 17918074 (Version 2)
Quarter: 2020Q2

REPORT INFORMATION
  Report Type: Report from Study
  Country: US (occurrence: US)
  Receive Date: 20200619
  Receipt Date: 20200624
  Transmission Date: 20200714
  Serious: Yes (Hospitalization)
  Sender: FDA-Public Use
  Company Number: US-SHIRE-US202019721

PATIENT
  Age: 71 Year
  Sex: Female

DRUGS (1)
  1. TEDUGLUTIDE [Suspect]
     Active Substance: TEDUGLUTIDE
     Indication: PRODUCT USED FOR UNKNOWN INDICATION
     Dosage: 0.27 MILLILITER, 1X/DAY:QD
     Route: 058

REACTIONS (5)
  - Electrolyte imbalance [Unknown]
  - Intentional product misuse [Unknown]
  - Dyspnoea [Unknown]
  - Malabsorption [Not Recovered/Not Resolved]
  - Weight decreased [Unknown]

NARRATIVE: CASE EVENT DATE: 20200612
